FAERS Safety Report 4607732-0 (Version None)
Quarter: 2005Q1

REPORT INFORMATION
  Report Type: 
  Country: None (occurrence: None)
  Receive Date: 20050309
  Receipt Date: 20050218
  Transmission Date: 20050727
  Serious: Yes (Other)
  Sender: FDA-Public Use
  Company Number: CEL-2004-02101-SLO

PATIENT
  Age: 8 Year
  Sex: Female
  Weight: 23 kg

DRUGS (4)
  1. EQUASYM 5MG (METHYLPHENIDATE HYDROCHLORIDE) [Suspect]
     Indication: ATTENTION DEFICIT/HYPERACTIVITY DISORDER
     Dosage: 10MG MORNING, 5MG LUNCHTIME, PO
     Route: 048
     Dates: start: 20040414, end: 20041203
  2. BECONASE [Concomitant]
  3. SALBUTAMOL SULPHATE (SALBUTAMOL SULPHATE) [Concomitant]
  4. SYMBICORT TURBOHALER (SYMBICORT ^ASTRAZENECA^) [Concomitant]

REACTIONS (5)
  - CONVULSION [None]
  - DECREASED APPETITE [None]
  - GRAND MAL CONVULSION [None]
  - TRANCE [None]
  - WEIGHT DECREASED [None]
